FAERS Safety Report 6577192-1 (Version None)
Quarter: 2010Q1

REPORT INFORMATION
  Report Type: 
  Country: None (occurrence: None)
  Receive Date: 20100210
  Receipt Date: 20100129
  Transmission Date: 20100710
  Serious: Yes (Hospitalization, Other)
  Sender: FDA-Public Use
  Company Number: PHHY2009TW30134

PATIENT
  Sex: Male
  Weight: 37.5 kg

DRUGS (3)
  1. EXJADE [Suspect]
     Indication: THALASSAEMIA BETA
     Dosage: UNK
     Dates: start: 20070201
  2. EXJADE [Suspect]
     Indication: CHELATION THERAPY
     Dosage: 1375 MG/DAY
     Route: 048
     Dates: start: 20090320
  3. EXJADE [Suspect]
     Dosage: 35 MG/KG/DAY
     Dates: end: 20091101

REACTIONS (16)
  - AZOTAEMIA [None]
  - FANCONI SYNDROME ACQUIRED [None]
  - HEPATIC ENCEPHALOPATHY [None]
  - HEPATIC FUNCTION ABNORMAL [None]
  - HYPOCALCAEMIA [None]
  - HYPOPHOSPHATAEMIA [None]
  - METABOLIC ACIDOSIS [None]
  - PNEUMOTHORAX [None]
  - PYREXIA [None]
  - RENAL INJURY [None]
  - RESPIRATORY FAILURE [None]
  - REYE'S SYNDROME [None]
  - STRESS ULCER [None]
  - TACHYPNOEA [None]
  - THROMBOCYTOPENIA [None]
  - URINE ANALYSIS ABNORMAL [None]
